FAERS Safety Report 6169303-7 (Version None)
Quarter: 2009Q2

REPORT INFORMATION
  Report Type: 
  Country: None (occurrence: None)
  Receive Date: 20090424
  Receipt Date: 20090409
  Transmission Date: 20091009
  Serious: Yes (Hospitalization)
  Sender: FDA-Public Use
  Company Number: 2008001509

PATIENT
  Age: 63 Year
  Sex: Male
  Weight: 88.6 kg

DRUGS (8)
  1. ERLOTINIB (ERLOTINIB) (TABLET) (ERLOTINIB) [Suspect]
     Indication: NON-SMALL CELL LUNG CANCER
     Dosage: (150 MG, QD), ORAL; (100 MG, QD), ORAL
     Route: 048
     Dates: start: 20080425, end: 20080604
  2. ERLOTINIB (ERLOTINIB) (TABLET) (ERLOTINIB) [Suspect]
     Indication: NON-SMALL CELL LUNG CANCER
     Dosage: (150 MG, QD), ORAL; (100 MG, QD), ORAL
     Route: 048
     Dates: start: 20080523
  3. SUNITINIB/PLACEBO [Suspect]
     Indication: NON-SMALL CELL LUNG CANCER
     Dosage: 37.5 MG, QD), ORAL
     Route: 048
     Dates: start: 20080425, end: 20080604
  4. NEXIUM [Concomitant]
  5. IBUPROFEN [Concomitant]
  6. NOVALGIN (METAMIZOLE SODIUM) [Concomitant]
  7. ZOMETA [Concomitant]
  8. DURAGESIC-100 [Concomitant]

REACTIONS (4)
  - CARDIAC FAILURE [None]
  - NEOPLASM PROGRESSION [None]
  - NON-SMALL CELL LUNG CANCER [None]
  - TACHYARRHYTHMIA [None]
